FAERS Safety Report 15423558 (Version 3)
Quarter: 2019Q1

REPORT INFORMATION
  Report Type: Spontaneous
  Country: US (occurrence: US)
  Receive Date: 20180925
  Receipt Date: 20190221
  Transmission Date: 20190417
  Serious: No
  Sender: FDA-Public Use
  Company Number: US-PFIZER INC-2018381611

PATIENT
  Age: 90 Year
  Sex: Female

DRUGS (2)
  1. XELJANZ XR [Suspect]
     Active Substance: TOFACITINIB CITRATE
     Indication: RHEUMATOID ARTHRITIS
     Dosage: 11 MG, 1X/DAY
     Dates: start: 201809
  2. TYLENOL 8HR [Concomitant]
     Active Substance: ACETAMINOPHEN
     Indication: PAIN
     Dosage: 650 (UNIT UNKNOWN), 2 TO 3 TIMES PER WEEK

REACTIONS (6)
  - Fatigue [Not Recovered/Not Resolved]
  - Pain in extremity [Recovering/Resolving]
  - Tooth loss [Unknown]
  - Musculoskeletal pain [Recovering/Resolving]
  - Tooth fracture [Unknown]
  - Somnolence [Unknown]

NARRATIVE: CASE EVENT DATE: 201809
